FAERS Safety Report 16703859 (Version 4)
Quarter: 2021Q1

REPORT INFORMATION
  Report Type: Other
  Country: CN (occurrence: CN)
  Receive Date: 20190814
  Receipt Date: 20210106
  Transmission Date: 20210419
  Serious: Yes (Death, Hospitalization, Other)
  Sender: FDA-Public Use
  Company Number: CN-ROCHE-1940809

PATIENT
  Age: 56 Year
  Sex: Male
  Weight: 60 kg

DRUGS (1)
  1. AVASTIN [Suspect]
     Active Substance: BEVACIZUMAB
     Indication: COLORECTAL CANCER
     Route: 041
     Dates: start: 20160802, end: 20201126

REACTIONS (9)
  - Gastric haemorrhage [Recovering/Resolving]
  - Nasopharyngitis [Unknown]
  - Cough [Unknown]
  - Death [Fatal]
  - Cerebral infarction [Unknown]
  - Inflammation [Unknown]
  - Hepatic neoplasm [Not Recovered/Not Resolved]
  - Influenza [Unknown]
  - Haematemesis [Unknown]

NARRATIVE: CASE EVENT DATE: 20200808
